FAERS Safety Report 25645548 (Version 1)
Quarter: 2025Q3

REPORT INFORMATION
  Report Type: Spontaneous
  Country: US (occurrence: None)
  Receive Date: 20250804
  Receipt Date: 20250804
  Transmission Date: 20251020
  Serious: Yes (Other)
  Sender: FDA-CTU
  Company Number: None

PATIENT
  Age: 67 Year
  Sex: Female
  Weight: 62 kg

DRUGS (1)
  1. KISUNLA [Suspect]
     Active Substance: DONANEMAB-AZBT
     Indication: Dementia Alzheimer^s type
     Dates: start: 20250804, end: 20250804

REACTIONS (7)
  - Infusion related reaction [None]
  - Erythema [None]
  - Nasal congestion [None]
  - Erythema [None]
  - Lethargy [None]
  - Blood pressure increased [None]
  - Speech disorder [None]

NARRATIVE: CASE EVENT DATE: 20250804
